FAERS Safety Report 9462403 (Version 1)
Quarter: 2013Q3

REPORT INFORMATION
  Report Type: Spontaneous
  Country: US (occurrence: US)
  Receive Date: 20130816
  Receipt Date: 20130816
  Transmission Date: 20140515
  Serious: Yes (Other)
  Sender: FDA-Public Use
  Company Number: CHPA2013US012789

PATIENT
  Sex: Female

DRUGS (2)
  1. PREVACID 24HR 15MG [Suspect]
     Dosage: UNK, UNK
     Route: 048
  2. BABY ASPIRIN [Concomitant]
     Route: 048

REACTIONS (2)
  - Viral infection [Unknown]
  - Treatment noncompliance [Unknown]
